FAERS Safety Report 15815236 (Version 1)
Quarter: 2019Q1

REPORT INFORMATION
  Report Type: Spontaneous
  Country: SK (occurrence: SK)
  Receive Date: 20190112
  Receipt Date: 20190112
  Transmission Date: 20190417
  Serious: Yes (Other)
  Sender: FDA-Public Use
  Company Number: SK-ACCORD-101597

PATIENT
  Age: 70 Year
  Sex: Male
  Weight: 84 kg

DRUGS (6)
  1. DOCETAXEL ACCORD [Suspect]
     Active Substance: DOCETAXEL
     Indication: CHEMOTHERAPY
     Dosage: 80 MG/ 4 ML AND 20 MG/ 1ML
     Route: 042
  2. PANTOPRAZOLE [Concomitant]
     Active Substance: PANTOPRAZOLE
  3. FERRO-FOLGAMMA [Concomitant]
     Active Substance: CYANOCOBALAMIN\FERROUS SULFATE\FOLIC ACID
  4. PREDNISONE. [Concomitant]
     Active Substance: PREDNISONE
  5. CALTRATE [Concomitant]
     Active Substance: CALCIUM CARBONATE
  6. VITACALCIN [Concomitant]

REACTIONS (4)
  - Localised oedema [Recovered/Resolved]
  - Rash [Recovered/Resolved]
  - Eyelid oedema [Recovered/Resolved]
  - Face oedema [Recovered/Resolved]

NARRATIVE: CASE EVENT DATE: 20180215
